FAERS Safety Report 18544705 (Version 1)
Quarter: 2020Q4

REPORT INFORMATION
  Report Type: Spontaneous
  Country: US (occurrence: US)
  Receive Date: 20201124
  Receipt Date: 20201124
  Transmission Date: 20210114
  Serious: Yes (Death)
  Sender: FDA-Public Use
  Company Number: None

PATIENT
  Sex: Female
  Weight: 65.7 kg

DRUGS (8)
  1. ACETAMINOPHEN ORAL [Concomitant]
  2. ATIVAN ORAL [Concomitant]
  3. XGEVA 120MG/ 1.7ML SUBCUTANEOUS [Concomitant]
  4. MULTIVITAMIN ADULT ORAL [Concomitant]
  5. GLUCOSAMINE ORAL [Concomitant]
  6. ONDANSETRON HCL ORAL [Concomitant]
  7. EVEROLIMUS. [Suspect]
     Active Substance: EVEROLIMUS
     Indication: BREAST CANCER
     Route: 048
     Dates: start: 20200521, end: 20201124
  8. IBRANCE 125MG ORAL [Concomitant]

REACTIONS (1)
  - Death [None]
